FAERS Safety Report 8611022-9 (Version None)
Quarter: 2012Q3

REPORT INFORMATION
  Report Type: 
  Country: None (occurrence: None)
  Receive Date: 20120822
  Receipt Date: 20120810
  Transmission Date: 20120928
  Serious: Yes (Hospitalization, Other)
  Sender: FDA-Public Use
  Company Number: JP-PFIZER INC-2012203593

PATIENT
  Age: 45 Year
  Sex: Female
  Weight: 61.9 kg

DRUGS (11)
  1. CERTOLIZUMAB PEGOL [Suspect]
     Indication: RHEUMATOID ARTHRITIS
     Dosage: 200 MG, Q2W
     Route: 058
     Dates: start: 20090703, end: 20101014
  2. OLMESARTAN MEDOXOMIL [Suspect]
     Indication: HYPERTENSION
     Dosage: 20 MG, 1X/DAY
     Route: 048
     Dates: start: 20120412, end: 20120731
  3. LOXONIN [Concomitant]
     Indication: BACK PAIN
     Dosage: UNK
     Dates: start: 20120315
  4. FOLIC ACID [Concomitant]
     Indication: PROPHYLAXIS
     Dosage: UNK
     Dates: start: 20110327
  5. SELBEX [Concomitant]
     Indication: GASTRITIS PROPHYLAXIS
     Dosage: UNK
     Dates: start: 20091216
  6. RHEUMATREX [Concomitant]
     Indication: RHEUMATOID ARTHRITIS
     Dosage: UNK
     Dates: start: 20110324
  7. CERTOLIZUMAB PEGOL [Suspect]
     Dosage: 400 MG, MONTHLY
     Route: 058
     Dates: start: 20101027, end: 20120509
  8. CALBLOCK [Suspect]
     Dosage: 8 MG, 1X/DAY
     Route: 048
  9. CELEBREX [Suspect]
     Indication: RHEUMATOID ARTHRITIS
     Dosage: 100 MG, 2X/DAY
     Route: 048
     Dates: start: 20091216
  10. CALBLOCK [Suspect]
     Indication: HYPERTENSION
     Dosage: 8 MG, 2X/DAY
     Route: 048
     Dates: start: 20120412
  11. KETOPROFEN [Concomitant]
     Indication: BACK PAIN
     Dosage: UNK (FORMULATION: TAPE)
     Dates: start: 20120315

REACTIONS (7)
  - HYPOAESTHESIA [None]
  - VERTIGO [None]
  - NAUSEA [None]
  - VOMITING [None]
  - NYSTAGMUS [None]
  - TINNITUS [None]
  - SUDDEN HEARING LOSS [None]
